FAERS Safety Report 23939084 (Version 1)
Quarter: 2024Q2

REPORT INFORMATION
  Report Type: Spontaneous
  Country: PL (occurrence: PL)
  Receive Date: 20240604
  Receipt Date: 20240604
  Transmission Date: 20240716
  Serious: Yes (Death, Hospitalization)
  Sender: FDA-Public Use
  Company Number: PL-STRIDES ARCOLAB LIMITED-2024SP006440

PATIENT
  Age: 80 Year
  Sex: Female

DRUGS (1)
  1. METHOTREXATE [Suspect]
     Active Substance: METHOTREXATE
     Indication: Rheumatoid arthritis
     Dosage: 5 DOSAGE FORM, ONCE A WEEK (EACH TABLET OF 2.5MG; 5?TABLETS ONCE A WEEK (12.5MG IN WEEK))
     Route: 065

REACTIONS (10)
  - Pancytopenia [Fatal]
  - Respiratory failure [Fatal]
  - Overdose [Fatal]
  - Pneumonia [Fatal]
  - Upper gastrointestinal haemorrhage [Fatal]
  - Haematemesis [Fatal]
  - Circulatory collapse [Fatal]
  - Toxicity to various agents [Fatal]
  - Stomatitis [Unknown]
  - Urinary tract infection [Unknown]
